FAERS Safety Report 23579405 (Version 3)
Quarter: 2024Q2

REPORT INFORMATION
  Report Type: Spontaneous
  Country: JP (occurrence: None)
  Receive Date: 20240229
  Receipt Date: 20240517
  Transmission Date: 20240716
  Serious: Yes (Other)
  Sender: FDA-Public Use
  Company Number: 2024A047115

PATIENT
  Age: 70 Year
  Sex: Male
  Weight: 62 kg

DRUGS (7)
  1. IMFINZI [Suspect]
     Active Substance: DURVALUMAB
     Indication: Bile duct cancer
     Route: 041
     Dates: start: 20240119, end: 20240207
  2. GEMCITABINE HYDROCHLORIDE [Concomitant]
     Active Substance: GEMCITABINE HYDROCHLORIDE
     Indication: Bile duct cancer
     Dosage: DOSE UNKNOWN
     Dates: start: 20240119
  3. CISPLATIN [Concomitant]
     Active Substance: CISPLATIN
     Indication: Bile duct cancer
     Dosage: DOSE UNKNOWN
     Dates: start: 20240119
  4. VONOPRAZAN FUMARATE [Concomitant]
     Active Substance: VONOPRAZAN FUMARATE
     Route: 048
  5. URSODIOL [Concomitant]
     Active Substance: URSODIOL
     Route: 048
     Dates: start: 20221026
  6. MAGNESIUM OXIDE [Concomitant]
     Active Substance: MAGNESIUM OXIDE
     Route: 048
     Dates: start: 20240130
  7. LOXOPROFEN SODIUM DIHYDRATE [Concomitant]
     Active Substance: LOXOPROFEN SODIUM DIHYDRATE
     Dosage: AS REQUIRED60.0MG UNKNOWN
     Route: 048

REACTIONS (18)
  - Liver abscess [Recovered/Resolved]
  - Atrial thrombosis [Unknown]
  - Neutropenia [Recovered/Resolved]
  - Decreased immune responsiveness [Unknown]
  - C-reactive protein decreased [Unknown]
  - Hypotension [Recovering/Resolving]
  - Hypoglycaemia [Recovering/Resolving]
  - Haemoglobin decreased [Not Recovered/Not Resolved]
  - Dyspnoea [Unknown]
  - Brain natriuretic peptide increased [Unknown]
  - Pulmonary congestion [Unknown]
  - Thrombocytopenia [Unknown]
  - Enterococcus test positive [Recovered/Resolved]
  - Gram stain positive [Recovered/Resolved]
  - Stenotrophomonas test positive [Recovered/Resolved]
  - Activated partial thromboplastin time prolonged [Unknown]
  - Biliary dilatation [Unknown]
  - Performance status decreased [Unknown]

NARRATIVE: CASE EVENT DATE: 20240101
